FAERS Safety Report 8560578 (Version 8)
Quarter: 2014Q2

REPORT INFORMATION
  Report Type: Report from Study
  Country: US (occurrence: US)
  Receive Date: 20120514
  Receipt Date: 20140624
  Transmission Date: 20141212
  Serious: Yes (Hospitalization, Other)
  Sender: FDA-Public Use
  Company Number: US-ACTELION-A-NJ2012-65269

PATIENT
  Age: 65 Year
  Sex: Female

DRUGS (4)
  1. TRACLEER [Suspect]
     Indication: PULMONARY ARTERIAL HYPERTENSION
     Dosage: UNK
     Route: 048
  2. TYVASO [Concomitant]
  3. COUMADIN [Concomitant]
  4. SILDENAFIL [Concomitant]

REACTIONS (7)
  - Tongue neoplasm [Unknown]
  - Tumour excision [Unknown]
  - Skin graft [Unknown]
  - Post procedural infection [Unknown]
  - Pericardial effusion [Unknown]
  - Laryngeal cancer [Unknown]
  - Dysphonia [Not Recovered/Not Resolved]
